FAERS Safety Report 5531784-7 (Version None)
Quarter: 2007Q4

REPORT INFORMATION
  Report Type: 
  Country: None (occurrence: None)
  Receive Date: 20071203
  Receipt Date: 20071121
  Transmission Date: 20080405
  Serious: Yes (Other)
  Sender: FDA-Public Use
  Company Number: US-BAYER-200713809BCC

PATIENT
  Age: 80 Year
  Sex: Male
  Weight: 86 kg

DRUGS (7)
  1. PHILLIPS MILK OF MAGNESIA LIQUID MINT [Suspect]
     Indication: CONSTIPATION
     Route: 048
     Dates: start: 20071119
  2. AMOXICILLIN [Concomitant]
  3. CLAVULAN [Concomitant]
  4. LABETALOL HCL [Concomitant]
  5. INDAPAMIDE [Concomitant]
  6. APAP W/ CODEINE [Concomitant]
  7. INDOMETHACIN [Concomitant]

REACTIONS (1)
  - HAEMATOCHEZIA [None]
